FAERS Safety Report 10238606 (Version 2)
Quarter: 2015Q3

REPORT INFORMATION
  Report Type: Report from Study
  Country: RU (occurrence: RU)
  Receive Date: 20140616
  Receipt Date: 20150813
  Transmission Date: 20151125
  Serious: Yes (Hospitalization, Other)
  Sender: FDA-Public Use
  Company Number: RU-SA-2014SA075294

PATIENT
  Age: 67 Year
  Sex: Male
  Weight: 70 kg

DRUGS (6)
  1. NEUPOGEN [Concomitant]
     Active Substance: FILGRASTIM
     Indication: NEUTROPENIA
     Dosage: DOSAGE: 30 ML UNITS,?FREQUENCY: ONCE, QD
     Route: 058
     Dates: start: 20140514, end: 20140522
  2. CABAZITAXEL [Suspect]
     Active Substance: CABAZITAXEL
     Indication: PROSTATE CANCER METASTATIC
     Dosage: 1 IN 21 D
     Route: 065
     Dates: start: 20140123, end: 201405
  3. ETAMSYLATE [Concomitant]
     Active Substance: ETHAMSYLATE
     Indication: GLOMERULONEPHRITIS
     Route: 030
     Dates: start: 20140514
  4. AMINOCAPROIC ACID. [Concomitant]
     Active Substance: AMINOCAPROIC ACID
     Indication: GLOMERULONEPHRITIS
     Route: 042
     Dates: start: 20140514
  5. ANTINEOPLASTIC AGENTS [Suspect]
     Active Substance: UNSPECIFIED INGREDIENT
     Indication: PROSTATE CANCER METASTATIC
     Route: 065
     Dates: start: 20140114, end: 20140515
  6. TRAMAL [Concomitant]
     Active Substance: TRAMADOL
     Indication: HAEMATURIA
     Route: 030
     Dates: start: 20140519

REACTIONS (3)
  - Glomerulonephritis [Not Recovered/Not Resolved]
  - Anaemia [Not Recovered/Not Resolved]
  - Neutropenia [Recovered/Resolved]

NARRATIVE: CASE EVENT DATE: 20140520
